FAERS Safety Report 15506630 (Version 1)
Quarter: 2018Q4

REPORT INFORMATION
  Report Type: Report from Study
  Country: US (occurrence: US)
  Receive Date: 20181016
  Receipt Date: 20181016
  Transmission Date: 20190205
  Serious: Yes (Other)
  Sender: FDA-Public Use
  Company Number: PHHY2018US126620

PATIENT
  Sex: Female

DRUGS (1)
  1. GILENYA [Suspect]
     Active Substance: FINGOLIMOD HYDROCHLORIDE
     Indication: MULTIPLE SCLEROSIS
     Dosage: 0.5 MG, (MONDAY, WEDNESDAY AND FRIDAY)
     Route: 048
     Dates: start: 20170207

REACTIONS (4)
  - Fall [Recovering/Resolving]
  - Multiple sclerosis relapse [Unknown]
  - Muscular weakness [Recovering/Resolving]
  - Inappropriate schedule of product administration [Unknown]
